FAERS Safety Report 4536006-1 (Version None)
Quarter: 2004Q4

REPORT INFORMATION
  Report Type: 
  Country: None (occurrence: None)
  Receive Date: 20041222
  Receipt Date: 20041222
  Transmission Date: 20050328
  Serious: No
  Sender: FDA-Public Use
  Company Number: None

PATIENT
  Age: 45 Year
  Sex: Female
  Weight: 50.8029 kg

DRUGS (2)
  1. VORICONAZOLE 200 MG [Suspect]
     Indication: DISEASE RECURRENCE
     Dosage: BID ORAL
     Route: 048
     Dates: start: 20040722, end: 20040802
  2. VORICONAZOLE 200 MG [Suspect]
     Indication: VAGINAL MYCOSIS
     Dosage: BID ORAL
     Route: 048
     Dates: start: 20040722, end: 20040802

REACTIONS (1)
  - STEVENS-JOHNSON SYNDROME [None]
